FAERS Safety Report 11916012 (Version 1)
Quarter: 2016Q1

REPORT INFORMATION
  Report Type: Spontaneous
  Country: US (occurrence: None)
  Receive Date: 20160113
  Receipt Date: 20160113
  Transmission Date: 20160526
  Serious: Yes (Other)
  Sender: FDA-Public Use
  Company Number: None

PATIENT
  Age: 17 Year
  Sex: Female

DRUGS (4)
  1. ZONISAMIDE 100MG GLENMARK [Suspect]
     Active Substance: ZONISAMIDE
     Indication: SEIZURE
     Dosage: QHS/BEDTIME
     Route: 048
     Dates: start: 20150928, end: 20160111
  2. CLONIDINE. [Concomitant]
     Active Substance: CLONIDINE
  3. MIRTAZEPINE [Concomitant]
     Active Substance: MIRTAZAPINE
  4. ESCITALOPRAM [Concomitant]
     Active Substance: ESCITALOPRAM OXALATE

REACTIONS (3)
  - Drug level decreased [None]
  - Product quality issue [None]
  - Seizure [None]
